FAERS Safety Report 8156895-1 (Version None)
Quarter: 2012Q1

REPORT INFORMATION
  Report Type: 
  Country: None (occurrence: None)
  Receive Date: 20120222
  Receipt Date: 20120217
  Transmission Date: 20120608
  Serious: Yes (Hospitalization)
  Sender: FDA-Public Use
  Company Number: FR-GLAXOSMITHKLINE-B0782319A

PATIENT
  Sex: Female

DRUGS (4)
  1. AMOXICILLIN TRIHYDRATE [Suspect]
     Indication: LUNG INFECTION
     Dosage: 3G PER DAY
     Route: 048
     Dates: start: 20100910, end: 20100910
  2. PREDNISOLONE [Suspect]
     Indication: ASTHMA
     Route: 048
     Dates: start: 20100910
  3. BUDESONIDE [Suspect]
     Indication: ASTHMA
     Dosage: 2SPR PER DAY
     Route: 055
  4. ALBUTEROL SULFATE [Suspect]
     Indication: ASTHMA
     Dosage: 8G PER DAY
     Route: 048

REACTIONS (5)
  - HYPERSENSITIVITY [None]
  - VOMITING [None]
  - LIP OEDEMA [None]
  - ANGIOEDEMA [None]
  - DRUG ADMINISTRATION ERROR [None]
